FAERS Safety Report 4696231-6 (Version None)
Quarter: 2005Q2

REPORT INFORMATION
  Report Type: 
  Country: None (occurrence: None)
  Receive Date: 20050621
  Receipt Date: 20050613
  Transmission Date: 20051028
  Serious: No
  Sender: FDA-Public Use
  Company Number: 2005UW09029

PATIENT
  Sex: Female

DRUGS (2)
  1. DIPRIVAN [Suspect]
     Route: 064
  2. MEDICINALPRODUCT NOT SPECIFIED BY SENDER [Concomitant]

REACTIONS (9)
  - AREFLEXIA [None]
  - DRUG EXPOSURE DURING PREGNANCY [None]
  - FEELING COLD [None]
  - NEONATAL DISORDER [None]
  - NERVOUS SYSTEM DISORDER [None]
  - PARALYSIS [None]
  - PREMATURE BABY [None]
  - PREMATURE LABOUR [None]
  - RESPIRATORY FAILURE [None]
